FAERS Safety Report 5683883-7 (Version None)
Quarter: 2008Q1

REPORT INFORMATION
  Report Type: 
  Country: None (occurrence: None)
  Receive Date: 20080327
  Receipt Date: 20080327
  Transmission Date: 20080703
  Serious: No
  Sender: FDA-Public Use
  Company Number: None

PATIENT
  Age: 84 Year
  Sex: Female
  Weight: 64.4108 kg

DRUGS (12)
  1. BENAZEPRIL HCL [Suspect]
     Indication: BLOOD CHOLESTEROL INCREASED
     Dosage: OR  2/DAY
     Route: 048
  2. LESCOL [Suspect]
     Indication: HYPERTENSION
  3. NORVASC [Suspect]
  4. ASPIRIN [Concomitant]
  5. LEVOTHYROXINE SODIUM [Concomitant]
  6. EDECRIN [Concomitant]
  7. ZETIA [Concomitant]
  8. OSCAL [Concomitant]
  9. TOPROL-XL [Concomitant]
  10. VITAMINS C, B12 [Concomitant]
  11. BREWER YEAST [Concomitant]
  12. LUTEIN [Concomitant]

REACTIONS (5)
  - CHEILITIS [None]
  - IMPAIRED HEALING [None]
  - LIP HAEMORRHAGE [None]
  - LIP SWELLING [None]
  - NO THERAPEUTIC RESPONSE [None]
